FAERS Safety Report 18235442 (Version 1)
Quarter: 2020Q3

REPORT INFORMATION
  Report Type: Spontaneous
  Country: DE (occurrence: DE)
  Receive Date: 20200905
  Receipt Date: 20200905
  Transmission Date: 20201103
  Serious: Yes (Hospitalization, Other)
  Sender: FDA-Public Use
  Company Number: DE-DRREDDYS-GER/GER/20/0126105

PATIENT
  Age: 57 Year
  Sex: Female

DRUGS (6)
  1. IBUPROFEN. [Suspect]
     Active Substance: IBUPROFEN
     Indication: PYREXIA
  2. METAMIZOLE [Suspect]
     Active Substance: METAMIZOLE
     Indication: PYREXIA
  3. METAMIZOLE [Suspect]
     Active Substance: METAMIZOLE
     Indication: COUGH
  4. AMOXICILLIN. [Suspect]
     Active Substance: AMOXICILLIN
     Indication: PYREXIA
  5. IBUPROFEN. [Suspect]
     Active Substance: IBUPROFEN
     Indication: COUGH
  6. AMOXICILLIN. [Suspect]
     Active Substance: AMOXICILLIN
     Indication: COUGH

REACTIONS (6)
  - Pneumonia [Recovered/Resolved]
  - Fibrin D dimer increased [Recovered/Resolved]
  - Drug ineffective [Unknown]
  - Rash maculo-papular [Recovering/Resolving]
  - Drug hypersensitivity [Recovering/Resolving]
  - Vasculitis [Recovering/Resolving]
